FAERS Safety Report 4446882-9 (Version None)
Quarter: 2004Q3

REPORT INFORMATION
  Report Type: 
  Country: None (occurrence: None)
  Receive Date: 20040908
  Receipt Date: 20040826
  Transmission Date: 20050211
  Serious: Yes (Hospitalization)
  Sender: FDA-Public Use
  Company Number: 2004052142

PATIENT
  Age: 53 Year
  Sex: Female
  Weight: 50 kg

DRUGS (5)
  1. LIPITOR [Suspect]
     Indication: HYPERLIPIDAEMIA
     Dosage: 10 MG (10 MG, 1 IN 1 D), ORAL
     Route: 048
     Dates: start: 20040629, end: 20040726
  2. CEFDITOREN PIVOXIL (CEFDITOREN PIVOXIL [Suspect]
     Indication: UPPER RESPIRATORY TRACT INFLAMMATION
     Dosage: 300 MG (100 MG, 3 IN 1 D), ORAL
     Route: 048
     Dates: start: 20040720, end: 20040722
  3. SERRAPEPTASE (SERRAPEPTASE) [Suspect]
     Indication: UPPER RESPIRATORY TRACT INFLAMMATION
     Dosage: 30 MG (10 MG, 3 IN 1 D), ORAL
     Route: 048
     Dates: start: 20040720, end: 20040722
  4. TIAPROFENIC ACID (TIAPROFENIC ACID) [Suspect]
     Indication: UPPER RESPIRATORY TRACT INFLAMMATION
     Dosage: 600 MG (200 MG, 3 IN 1 D), ORAL
     Route: 048
     Dates: start: 20040720, end: 20040722
  5. MARZULENE S (LEVOGLUTAMIDE, SODIUM GUALENATE) [Suspect]
     Indication: UPPER RESPIRATORY TRACT INFLAMMATION
     Dosage: 2 GRAM (3 IN 1 D), ORAL
     Route: 048
     Dates: start: 20040720, end: 20040722

REACTIONS (11)
  - ALANINE AMINOTRANSFERASE INCREASED [None]
  - ASPARTATE AMINOTRANSFERASE INCREASED [None]
  - BILIRUBIN CONJUGATED INCREASED [None]
  - BLOOD ALKALINE PHOSPHATASE INCREASED [None]
  - BLOOD BILIRUBIN INCREASED [None]
  - EOSINOPHIL COUNT INCREASED [None]
  - FACE OEDEMA [None]
  - JAUNDICE [None]
  - LIVER DISORDER [None]
  - MALAISE [None]
  - PYREXIA [None]
